FAERS Safety Report 9248341 (Version 1)
Quarter: 2013Q1

REPORT INFORMATION
  Report Type: Spontaneous
  Country: US (occurrence: None)
  Receive Date: 20130305
  Receipt Date: 20130305
  Transmission Date: 20140127
  Serious: Yes (Disabling)
  Sender: FDA-Public Use
  Company Number: 163-21880-12093186

PATIENT
  Age: 56 Year
  Sex: Female
  Weight: 108.86 kg

DRUGS (14)
  1. REVLIMID (LENALIDOMIDE) [Suspect]
     Indication: PLASMA CELL MYELOMA
     Route: 048
     Dates: start: 201104
  2. ACICLOVIR (ACICLOVIR) [Concomitant]
  3. BABY ASPIRIN (ACETYLSALICYLIC ACID) [Concomitant]
  4. CLARITIN (LORATADINE) [Concomitant]
  5. CLOTRIMAZOLE [Concomitant]
  6. CO Q 10 (UBIDECARENONE) [Concomitant]
  7. GABAPENTIN (GABAPENTIN) [Concomitant]
  8. MELATONIN (MELATONIN) [Concomitant]
  9. MENTANX (BUTENAFINE HYDROCHLORIDE) [Concomitant]
  10. VITAMINS [Concomitant]
  11. NIACIN (NICOTINIC ACID) [Concomitant]
  12. VITAMIN D3 [Concomitant]
  13. ZOMETA (ZOLEDRONIC ACID) [Concomitant]
  14. CORTEX (OTHER THERAPEUTIC PRODUCTS) [Concomitant]

REACTIONS (1)
  - Candida infection [None]
